FAERS Safety Report 6496150-9 (Version None)
Quarter: 2009Q4

REPORT INFORMATION
  Report Type: 
  Country: None (occurrence: None)
  Receive Date: 20091214
  Receipt Date: 20091006
  Transmission Date: 20100525
  Serious: No
  Sender: FDA-Public Use
  Company Number: US-BRISTOL-MYERS SQUIBB COMPANY-14808471

PATIENT
  Age: 3 Decade
  Sex: Female

DRUGS (3)
  1. ABILIFY [Suspect]
     Dosage: STARTED WITH 2MG. THEN INCREASED TO 15MG
  2. PROZAC [Suspect]
  3. LAMICTAL [Suspect]

REACTIONS (1)
  - DYSKINESIA [None]
